FAERS Safety Report 24458904 (Version 1)
Quarter: 2024Q4

REPORT INFORMATION
  Report Type: Spontaneous
  Country: ID (occurrence: ID)
  Receive Date: 20241018
  Receipt Date: 20241018
  Transmission Date: 20250114
  Serious: No
  Sender: ROCHE
  Company Number: ID-BoehringerIngelheim-2023-BI-271264

PATIENT
  Age: 38 Year
  Sex: Female
  Weight: 80.0 kg

DRUGS (2)
  1. ALTEPLASE [Suspect]
     Active Substance: ALTEPLASE
     Indication: Pulmonary embolism
     Dosage: OVER 2 HOUR
     Route: 042
  2. ALTEPLASE [Suspect]
     Active Substance: ALTEPLASE
     Dosage: FOLLOWED BY CONTINUES INFUSION OF 25MG OVER THE NEXT 22 HOURS.
     Route: 042

REACTIONS (1)
  - Haemorrhage [Recovering/Resolving]
